FAERS Safety Report 6251969-4 (Version None)
Quarter: 2009Q2

REPORT INFORMATION
  Report Type: 
  Country: None (occurrence: None)
  Receive Date: 20090630
  Receipt Date: 20040716
  Transmission Date: 20091009
  Serious: Yes (Death, Hospitalization)
  Sender: FDA-Public Use
  Company Number: US-ROCHE-638294

PATIENT
  Sex: Male

DRUGS (25)
  1. ENFUVIRTIDE [Suspect]
     Indication: PNEUMONIA
     Route: 065
     Dates: start: 20040227, end: 20051205
  2. ENFUVIRTIDE [Suspect]
     Route: 065
     Dates: start: 20060418, end: 20060705
  3. EMTRIVA [Concomitant]
     Dates: start: 20030924, end: 20050311
  4. NORVIR [Concomitant]
     Dates: start: 20031003, end: 20060705
  5. NORVIR [Concomitant]
     Dates: start: 20061027, end: 20070116
  6. REYATAZ [Concomitant]
     Dates: start: 20040129, end: 20050105
  7. LEXIVA [Concomitant]
     Dates: start: 20050105, end: 20060623
  8. VIDEX EC [Concomitant]
     Dates: start: 20050311, end: 20050527
  9. APTIVUS [Concomitant]
     Dates: start: 20050527, end: 20060705
  10. VIREAD [Concomitant]
     Dates: start: 20050527, end: 20060705
  11. INVIRASE [Concomitant]
     Dates: start: 20060705, end: 20070910
  12. KALETRA [Concomitant]
     Dates: start: 20060705, end: 20070910
  13. TRUVADA [Concomitant]
     Dates: start: 20060705, end: 20061027
  14. TRUVADA [Concomitant]
     Dates: start: 20070116, end: 20070910
  15. COMBIVIR [Concomitant]
     Dates: start: 20061027, end: 20070116
  16. PREZISTA [Concomitant]
     Dates: start: 20070116, end: 20070207
  17. BACTRIM DS [Concomitant]
     Dates: start: 20030827, end: 20080404
  18. DYNABAC [Concomitant]
     Dates: start: 20031208, end: 20040504
  19. DECADRON [Concomitant]
     Dates: start: 20040716
  20. ZITHROMAX [Concomitant]
     Dates: start: 20040716
  21. CLINDAMYCIN [Concomitant]
     Dates: start: 20040805, end: 20040825
  22. BIAXIN [Concomitant]
     Dates: start: 20040922
  23. KETEK [Concomitant]
     Dates: start: 20041221, end: 20080404
  24. BACTRIM [Concomitant]
     Route: 042
     Dates: start: 20070502, end: 20070515
  25. MERREM [Concomitant]
     Route: 042
     Dates: start: 20070502, end: 20070515

REACTIONS (9)
  - ACQUIRED IMMUNODEFICIENCY SYNDROME [None]
  - BLOOD OSMOLARITY DECREASED [None]
  - CYTOMEGALOVIRUS INFECTION [None]
  - DYSPHAGIA [None]
  - HIV INFECTION [None]
  - HIV WASTING SYNDROME [None]
  - OESOPHAGITIS [None]
  - PANCREATITIS ACUTE [None]
  - RENAL FAILURE ACUTE [None]
